FAERS Safety Report 6137577-4 (Version None)
Quarter: 2009Q1

REPORT INFORMATION
  Report Type: 
  Country: None (occurrence: None)
  Receive Date: 20090327
  Receipt Date: 20090327
  Transmission Date: 20090719
  Serious: Yes (Life-Threatening, Other)
  Sender: FDA-Public Use
  Company Number: None

PATIENT
  Age: 61 Year
  Sex: Male

DRUGS (1)
  1. COMMITT LOZENGERS (4 MIN) [Suspect]
     Dosage: 1 3 TIMES A DAY STOPPED COMMITT 2/10/09 WHEN I FOUND OUT IT CAUSED THE CANCER
     Dates: start: 20080101, end: 20090210

REACTIONS (2)
  - ORAL DISORDER [None]
  - SQUAMOUS CELL CARCINOMA [None]
